FAERS Safety Report 10191538 (Version 1)
Quarter: 2014Q2

REPORT INFORMATION
  Report Type: Spontaneous
  Country: IN (occurrence: None)
  Receive Date: 20140521
  Receipt Date: 20140521
  Transmission Date: 20141212
  Serious: Yes (Hospitalization)
  Sender: FDA-Public Use
  Company Number: ANI_2014_1381641

PATIENT
  Age: 26 Year
  Sex: Male

DRUGS (2)
  1. PHENYTOIN SODIUM [Suspect]
     Indication: COMPLEX PARTIAL SEIZURES
     Dosage: DAY
  2. PHENOBARBITAL (NON-SPECIFIC) [Suspect]
     Indication: COMPLEX PARTIAL SEIZURES
     Dosage: DAY

REACTIONS (13)
  - Somatoform disorder [None]
  - Suicide attempt [None]
  - Intentional overdose [None]
  - Toxicity to various agents [None]
  - Loss of consciousness [None]
  - Stubbornness [None]
  - Impulse-control disorder [None]
  - Irritability [None]
  - Psychiatric symptom [None]
  - Frustration [None]
  - Coma [None]
  - Crepitations [None]
  - Depressed mood [None]
